FAERS Safety Report 23732792 (Version 1)
Quarter: 2024Q2

REPORT INFORMATION
  Report Type: Spontaneous
  Country: TW (occurrence: TW)
  Receive Date: 20240411
  Receipt Date: 20240411
  Transmission Date: 20240715
  Serious: Yes (Death, Other)
  Sender: FDA-Public Use
  Company Number: TW-AMGEN-TWNSP2024069075

PATIENT

DRUGS (2)
  1. BEVACIZUMAB [Suspect]
     Active Substance: BEVACIZUMAB
     Indication: Lung adenocarcinoma stage IV
     Dosage: 7.5 MILLIGRAM/KILOGRAM (BODY WEIGHT), Q3WK
     Route: 065
  2. RAMUCIRUMAB [Suspect]
     Active Substance: RAMUCIRUMAB
     Indication: Lung adenocarcinoma stage IV
     Dosage: 10 MILLIGRAM/KILOGRAM EVERY 2-3 WEEKS
     Route: 065

REACTIONS (7)
  - Death [Fatal]
  - Lung adenocarcinoma recurrent [Unknown]
  - Haemorrhage [Unknown]
  - Therapy partial responder [Unknown]
  - Adverse event [Unknown]
  - Hypertension [Unknown]
  - Proteinuria [Unknown]
